FAERS Safety Report 6471262-4 (Version None)
Quarter: 2009Q4

REPORT INFORMATION
  Report Type: 
  Country: None (occurrence: None)
  Receive Date: 20091203
  Receipt Date: 20080220
  Transmission Date: 20100525
  Serious: No
  Sender: FDA-Public Use
  Company Number: DE-ELI_LILLY_AND_COMPANY-DE200802005487

PATIENT
  Age: 41 Year
  Sex: Male

DRUGS (2)
  1. TADALAFIL [Suspect]
     Indication: ERECTILE DYSFUNCTION
     Dosage: 20 MG, UNK
  2. INSULIN [Concomitant]
     Indication: TYPE 2 DIABETES MELLITUS

REACTIONS (4)
  - ERYTHEMA [None]
  - HEART RATE INCREASED [None]
  - INTRAOCULAR PRESSURE TEST [None]
  - OCULAR HYPERAEMIA [None]
